FAERS Safety Report 21978538 (Version 1)
Quarter: 2023Q1

REPORT INFORMATION
  Report Type: Report from Study
  Country: CA (occurrence: CA)
  Receive Date: 20230210
  Receipt Date: 20230210
  Transmission Date: 20230418
  Serious: Yes (Hospitalization)
  Sender: FDA-Public Use
  Company Number: CA-UCBSA-2023003989

PATIENT
  Sex: Female

DRUGS (2)
  1. BRIVARACETAM [Suspect]
     Active Substance: BRIVARACETAM
     Indication: Epilepsy
     Dosage: 100 MILLIGRAM, 2X/DAY (BID)
     Route: 048
     Dates: start: 20220106
  2. BRIVARACETAM [Suspect]
     Active Substance: BRIVARACETAM
     Indication: Off label use
     Dosage: 100 MILLIGRAM, 2X/DAY (BID)
     Route: 048
     Dates: start: 20220127

REACTIONS (4)
  - Hospitalisation [Unknown]
  - Mental disorder [Unknown]
  - General physical health deterioration [Unknown]
  - Off label use [Unknown]
